FAERS Safety Report 12838701 (Version 1)
Quarter: 2016Q4

REPORT INFORMATION
  Report Type: Spontaneous
  Country: US (occurrence: US)
  Receive Date: 20161011
  Receipt Date: 20161011
  Transmission Date: 20170207
  Serious: Yes (Other)
  Sender: FDA-Public Use
  Company Number: None

PATIENT
  Age: 15 Year
  Sex: Female
  Weight: 127.12 kg

DRUGS (5)
  1. PACELS [Concomitant]
  2. VISTARIL [Concomitant]
     Active Substance: HYDROXYZINE PAMOATE
  3. TOPAMAX [Concomitant]
     Active Substance: TOPIRAMATE
  4. IBUPROFEN. [Concomitant]
     Active Substance: IBUPROFEN
  5. NEXPLANON [Suspect]
     Active Substance: ETONOGESTREL

REACTIONS (4)
  - Abdominal pain lower [None]
  - Back pain [None]
  - Headache [None]
  - Menorrhagia [None]

NARRATIVE: CASE EVENT DATE: 20160903
